FAERS Safety Report 19954395 (Version 2)
Quarter: 2021Q4

REPORT INFORMATION
  Report Type: Spontaneous
  Country: US (occurrence: US)
  Receive Date: 20211013
  Receipt Date: 20211119
  Transmission Date: 20220303
  Serious: Yes (Hospitalization, Other)
  Sender: FDA-Public Use
  Company Number: US-UCBSA-2021048319

PATIENT
  Age: 12 Year
  Sex: Female

DRUGS (3)
  1. LACOSAMIDE [Suspect]
     Active Substance: LACOSAMIDE
     Indication: Partial seizures
     Dosage: UNK
  2. LEVETIRACETAM [Suspect]
     Active Substance: LEVETIRACETAM
     Indication: Partial seizures
     Dosage: UNK
  3. LORAZEPAM [Suspect]
     Active Substance: LORAZEPAM
     Indication: Partial seizures
     Dosage: UNK

REACTIONS (5)
  - Seizure [Unknown]
  - Cognitive disorder [Unknown]
  - Mutism [Unknown]
  - Insomnia [Unknown]
  - Multiple-drug resistance [Unknown]
